FAERS Safety Report 17782112 (Version 1)
Quarter: 2020Q2

REPORT INFORMATION
  Report Type: Spontaneous
  Country: GB (occurrence: GB)
  Receive Date: 20200514
  Receipt Date: 20200514
  Transmission Date: 20200714
  Serious: No
  Sender: FDA-Public Use
  Company Number: GB-ALKEM LABORATORIES LIMITED-GB-ALKEM-2020-00771

PATIENT
  Age: 51 Year
  Sex: Female
  Weight: 57 kg

DRUGS (8)
  1. RAMIPRIL. [Concomitant]
     Active Substance: RAMIPRIL
     Indication: ILL-DEFINED DISORDER
     Dosage: UNKNOWN
     Route: 065
     Dates: start: 20121012
  2. ESTRADIOL. [Concomitant]
     Active Substance: ESTRADIOL
     Indication: ILL-DEFINED DISORDER
     Dosage: UNKNOWN
     Route: 065
     Dates: start: 20190228, end: 20200109
  3. INDAPAMIDE. [Concomitant]
     Active Substance: INDAPAMIDE
     Indication: ILL-DEFINED DISORDER
     Dosage: UNK
     Route: 065
     Dates: start: 20121012, end: 20200109
  4. PREGABALIN. [Suspect]
     Active Substance: PREGABALIN
     Indication: PRODUCT USED FOR UNKNOWN INDICATION
     Dosage: UNKNOWN
     Route: 065
     Dates: start: 20170223
  5. DOXAZOSIN [Concomitant]
     Active Substance: DOXAZOSIN MESYLATE
     Indication: ILL-DEFINED DISORDER
     Dosage: UNKNOWN
     Route: 065
     Dates: start: 20191223
  6. MACROGOL [Concomitant]
     Active Substance: POLYETHYLENE GLYCOLS
     Indication: ILL-DEFINED DISORDER
     Dosage: UNKNOWN
     Route: 065
     Dates: start: 20160722, end: 20200109
  7. LAXIDO [Concomitant]
     Active Substance: POLYETHYLENE GLYCOL 3350\POTASSIUM CHLORIDE\SODIUM BICARBONATE\SODIUM CHLORIDE
     Indication: ILL-DEFINED DISORDER
     Dosage: UNKNOWN
     Route: 065
     Dates: start: 20200124
  8. ESTRIOL [Concomitant]
     Active Substance: ESTRIOL
     Indication: ILL-DEFINED DISORDER
     Dosage: UNKNOWN
     Route: 065
     Dates: start: 20200124

REACTIONS (1)
  - Abnormal weight gain [Unknown]

NARRATIVE: CASE EVENT DATE: 20170223
